FAERS Safety Report 9384170 (Version 2)
Quarter: 2013Q3

REPORT INFORMATION
  Report Type: Report from Study
  Country: US (occurrence: US)
  Receive Date: 20130705
  Receipt Date: 20130711
  Transmission Date: 20140515
  Serious: Yes (Hospitalization)
  Sender: FDA-Public Use
  Company Number: US-ROCHE-1243586

PATIENT
  Age: 48 Year
  Sex: Male

DRUGS (5)
  1. RITUXIMAB [Suspect]
     Indication: PEMPHIGUS
     Route: 042
     Dates: start: 20120106, end: 20120127
  2. PREDNISONE [Concomitant]
     Indication: PEMPHIGUS
     Route: 048
     Dates: start: 2009
  3. NIACINAMIDE [Concomitant]
     Indication: PEMPHIGUS
     Route: 065
     Dates: start: 20111028
  4. BACTRIM DS [Concomitant]
     Indication: ANTIFUNGAL PROPHYLAXIS
     Route: 048
     Dates: start: 20111116
  5. DOXYCYCLINE [Concomitant]
     Indication: PEMPHIGUS
     Route: 048
     Dates: start: 20111028

REACTIONS (5)
  - Headache [Recovered/Resolved]
  - Nausea [Recovered/Resolved]
  - Myalgia [Recovered/Resolved]
  - Arthralgia [Recovered/Resolved]
  - Oedema peripheral [Recovered/Resolved]
